FAERS Safety Report 15080590 (Version 1)
Quarter: 2018Q3

REPORT INFORMATION
  Report Type: Spontaneous
  Country: FI (occurrence: FI)
  Receive Date: 20180628
  Receipt Date: 20180628
  Transmission Date: 20181010
  Serious: Yes (Other)
  Sender: FDA-Public Use
  Company Number: FI-TEVA-2018-FI-917827

PATIENT
  Age: 40 Year
  Sex: Female

DRUGS (17)
  1. KETIPINOR 100 MG TABLET [Concomitant]
     Dosage: 1?2 TABLETS A DAY.IF NEEDED INCREASED MAX 600 MG/DAY
     Dates: start: 20170505
  2. SEROQUEL PROLONGED RELEASE 400 MG [Concomitant]
     Dosage: 400 MILLIGRAM DAILY;
     Dates: start: 20170824
  3. EMGESAN 250 MG TABLETS [Concomitant]
     Dosage: IF NEEDED 125 MG, MAX 250 MG/DAY.
     Dates: start: 20170922
  4. KETIPINOR 100 MG TABLET [Concomitant]
     Dosage: 100 MG+100 MG+200 MG EVERY DAY, MAX. 400 MG/DAY.
     Dates: start: 20171020
  5. OXAMIN 15 MG [Suspect]
     Active Substance: OXAZEPAM
     Dosage: IF NEEDED, MAX 45 MG/DAY
     Route: 048
     Dates: start: 20170824
  6. SEROQUEL PROLONGED RELEASE 400 MG [Concomitant]
     Dates: start: 20170922
  7. EMGESAN 250 MG TABLETS [Concomitant]
     Dosage: IF NEEDED 125 MG, MAX 250 MG/DAY
     Dates: start: 20170824
  8. OBSIDAN 100 MG CAPSULE [Concomitant]
     Dates: start: 20171020
  9. KETIPINOR 100 MG TABLET [Concomitant]
     Dosage: 50 MG + 50 MG + 200 MG EVERY DAY.ADDITIONALLY 1 TABLET IF NEEDED, MAX 400 MG/DAY.
     Dates: start: 20170922
  10. LORAZEPAM 2 MG/ML INJECTION [Concomitant]
     Dosage: 4 MG (MAX 8 MG/DAY)
     Dates: start: 20171020
  11. KETIPINOR 100 MG TABLET [Concomitant]
     Dosage: 2 TABLETS ONCE A DAY.ADDITIONALLY KETIPINOR (QUETIAPINE) 100 MG TABLET, IF NEEDED, MAX 300 MG/DAY.
     Dates: start: 20170824
  12. EMGESAN 250 MG TABLETS [Concomitant]
     Dosage: IF NEEDED 125 MG, MAX 250 MG/DAY.
     Dates: start: 20171020
  13. OPAMOX 15 MG TABLETS [Concomitant]
     Dosage: IF NEEDED, MAX 30 MG/DAY.
     Dates: start: 20171020
  14. TENOX 10 MG [Concomitant]
     Dosage: 1 TABLET IN EVENING, MAX 20 MG/DAY
     Dates: start: 20180505
  15. SEROQUEL PROLONGED RELEASE 400 MG [Concomitant]
     Dosage: 500 MG ONCE A DAY, ADDITIONALLY IF NEEDED
  16. OPAMOX 15 MG TABLETS [Concomitant]
     Dosage: IF NEEDED, 15?30 MG (MAX 30 MG/DAY)
     Dates: start: 20170922
  17. PANADOL FORTE 1 G TABLETS [Concomitant]
     Dosage: IF NEEDED, MAX 3 G/DAY
     Dates: start: 20171020

REACTIONS (6)
  - Caesarean section [Unknown]
  - Maternal exposure during pregnancy [Unknown]
  - Anaemia [Unknown]
  - Live birth [Unknown]
  - Tobacco user [None]
  - Malnutrition [Unknown]

NARRATIVE: CASE EVENT DATE: 20171106
